FAERS Safety Report 11022258 (Version 1)
Quarter: 2015Q2

REPORT INFORMATION
  Report Type: Spontaneous
  Country: JP (occurrence: JP)
  Receive Date: 20150413
  Receipt Date: 20150413
  Transmission Date: 20150821
  Serious: Yes (Life-Threatening, Other)
  Sender: FDA-Public Use
  Company Number: JP-ASTRAZENECA-2015SE34231

PATIENT
  Age: 33 Year
  Sex: Male
  Weight: 80 kg

DRUGS (2)
  1. NEUROPSYCHIATRIC DRUG [Suspect]
     Active Substance: UNSPECIFIED INGREDIENT
     Route: 065
  2. SEROQUEL [Suspect]
     Active Substance: QUETIAPINE FUMARATE
     Route: 048
     Dates: start: 20150407, end: 20150407

REACTIONS (3)
  - Suicide attempt [Unknown]
  - Somnolence [Unknown]
  - Intentional overdose [Unknown]

NARRATIVE: CASE EVENT DATE: 20150407
